FAERS Safety Report 4520950-5 (Version None)
Quarter: 2004Q4

REPORT INFORMATION
  Report Type: 
  Country: None (occurrence: None)
  Receive Date: 20041208
  Receipt Date: 20041201
  Transmission Date: 20050328
  Serious: Yes (Hospitalization)
  Sender: FDA-Public Use
  Company Number: PHBS2004GR16115

PATIENT
  Age: 47 Year
  Sex: Female

DRUGS (1)
  1. SANDIMMUNE [Suspect]
     Indication: KERATOSIS FOLLICULAR
     Dosage: 200 MG/D
     Route: 048

REACTIONS (2)
  - BLOOD IRON DECREASED [None]
  - HAEMATOCRIT DECREASED [None]
